FAERS Safety Report 5202696-3 (Version None)
Quarter: 2006Q4

REPORT INFORMATION
  Report Type: 
  Country: None (occurrence: None)
  Receive Date: 20061018
  Receipt Date: 20050401
  Transmission Date: 20070319
  Serious: Yes (Other)
  Sender: FDA-Public Use
  Company Number: PHEH2005US02151

PATIENT
  Age: 77 Year
  Sex: Male
  Weight: 108.8 kg

DRUGS (6)
  1. ZOMETA [Suspect]
     Indication: BONE DENSITY DECREASED
     Dosage: 4 MG, INTRAVENOUS
     Route: 042
     Dates: start: 20050211, end: 20050214
  2. PREVACID [Concomitant]
  3. ZOCOR [Concomitant]
  4. NIACIN [Concomitant]
  5. FLOMAX  ^CSL^(TAMSULOSIN HYDROCHLORIDE) [Concomitant]
  6. LUPRON [Concomitant]

REACTIONS (5)
  - BONE PAIN [None]
  - DYSPNOEA [None]
  - FATIGUE [None]
  - NAUSEA [None]
  - PYREXIA [None]
